FAERS Safety Report 25217200 (Version 2)
Quarter: 2025Q2

REPORT INFORMATION
  Report Type: Spontaneous
  Country: US (occurrence: None)
  Receive Date: 20250419
  Receipt Date: 20250613
  Transmission Date: 20250717
  Serious: Yes (Hospitalization)
  Sender: Alvotech
  Company Number: None

PATIENT
  Sex: Female

DRUGS (1)
  1. SIMLANDI [Suspect]
     Active Substance: ADALIMUMAB-RYVK
     Indication: Product used for unknown indication
     Dosage: EVERY 2 WEEKS?KIT
     Route: 065
     Dates: start: 202202

REACTIONS (13)
  - Blister [Unknown]
  - Chills [Unknown]
  - Depression [Unknown]
  - Erythema [Unknown]
  - Swelling face [Unknown]
  - Fatigue [Unknown]
  - Pyrexia [Unknown]
  - Product quality issue [Unknown]
  - Pustule [Unknown]
  - Malaise [Unknown]
  - Urticaria [Unknown]
  - Pain [Unknown]
  - Blister [Unknown]
